FAERS Safety Report 9506939 (Version 1)
Quarter: 2013Q3

REPORT INFORMATION
  Report Type: Spontaneous
  Country: US (occurrence: US)
  Receive Date: 20130909
  Receipt Date: 20130909
  Transmission Date: 20140515
  Serious: Yes (Other)
  Sender: FDA-Public Use
  Company Number: US-JNJFOC-20130902794

PATIENT
  Age: 65 Year
  Sex: Female
  Weight: 79.36 kg

DRUGS (2)
  1. NICOTROL INHALER [Suspect]
     Route: 055
  2. NICOTROL INHALER [Suspect]
     Indication: SMOKING CESSATION THERAPY
     Dosage: AS NECESSARY
     Route: 055
     Dates: start: 20130319

REACTIONS (4)
  - Drug dependence [Not Recovered/Not Resolved]
  - Depression [Not Recovered/Not Resolved]
  - Weight increased [Not Recovered/Not Resolved]
  - Hypophagia [Not Recovered/Not Resolved]
